FAERS Safety Report 11944433 (Version 1)
Quarter: 2016Q1

REPORT INFORMATION
  Report Type: Other
  Country: US (occurrence: US)
  Receive Date: 20160125
  Receipt Date: 20160125
  Transmission Date: 20160526
  Serious: Yes (Death)
  Sender: FDA-Public Use
  Company Number: US-LUPIN PHARMACEUTICALS INC.-2016-00271

PATIENT
  Age: 5 Year
  Sex: Male

DRUGS (2)
  1. VANCOMYCIN [Suspect]
     Active Substance: VANCOMYCIN
     Indication: PERITONITIS BACTERIAL
     Route: 065
  2. CEFEPIME [Suspect]
     Active Substance: CEFEPIME HYDROCHLORIDE
     Indication: PERITONITIS BACTERIAL
     Route: 065

REACTIONS (1)
  - Cryptococcosis [Fatal]
